FAERS Safety Report 6747011-9 (Version None)
Quarter: 2010Q2

REPORT INFORMATION
  Report Type: 
  Country: None (occurrence: None)
  Receive Date: 20100528
  Receipt Date: 20100518
  Transmission Date: 20101027
  Serious: Yes (Other)
  Sender: FDA-Public Use
  Company Number: PHHY2010US26308

PATIENT
  Sex: Male
  Weight: 163.81 kg

DRUGS (21)
  1. RECLAST [Suspect]
     Indication: OSTEOPOROSIS
     Dosage: 5 MG ANNUALLY
     Route: 042
     Dates: start: 20090401, end: 20100409
  2. TYLENOL (CAPLET) [Suspect]
  3. ABILIFY [Concomitant]
     Dosage: 15 MG, BID
     Route: 048
  4. LITHIUM [Concomitant]
     Dosage: 300 MG, 2 TABLETS IN AM AND 3 TABLETS IN PM
     Route: 048
  5. ZOLOFT [Concomitant]
     Dosage: 200 MG, QD
     Route: 048
  6. ZOCOR [Concomitant]
     Dosage: 40 MG, DAILY
     Route: 048
  7. EFFEXOR [Concomitant]
  8. TESTOSTERONE [Concomitant]
     Dosage: 150 MG 2 WEEKS
     Route: 030
  9. LISINOPRIL [Concomitant]
  10. MIRAPEX [Concomitant]
     Dosage: 0.12 MG, QHS
     Route: 048
  11. BENZTROPINE MESYLATE [Concomitant]
     Dosage: 0.5 MG, BID
     Route: 048
  12. AMLODIPINE [Concomitant]
     Dosage: 25 MG, QD
     Route: 048
  13. MULTI-VITAMINS [Concomitant]
     Dosage: ONCE A DAILY
     Route: 048
  14. CALCIUM CARBONATE [Concomitant]
     Route: 048
  15. MAGNESIUM WITH  VITAMIN E, D AND C [Concomitant]
     Dosage: ONCE DAILY
     Route: 048
  16. VITAMIN B COMPLEX CAP [Concomitant]
     Dosage: DAILY
     Route: 048
  17. OCUGUARD [Concomitant]
     Dosage: DAILY
     Route: 048
  18. GLUCOSAMINE W/CHONDROITIN [Concomitant]
     Dosage: 3 DAILY
     Route: 048
  19. CINNAMON [Concomitant]
     Dosage: PRN, DAILY
     Route: 048
  20. EFFEXOR [Concomitant]
     Dosage: 37.5 MG ON AM AND 175 MG IN PM
     Route: 048
  21. CHOLINE W/INOSITOL [Concomitant]
     Dosage: DAILY
     Route: 048

REACTIONS (13)
  - BONE PAIN [None]
  - COORDINATION ABNORMAL [None]
  - DIZZINESS [None]
  - ERYTHEMA [None]
  - HEADACHE [None]
  - HOT FLUSH [None]
  - INFLUENZA LIKE ILLNESS [None]
  - MYALGIA [None]
  - PAIN [None]
  - PYREXIA [None]
  - TREMOR [None]
  - VISION BLURRED [None]
  - VOMITING [None]
